FAERS Safety Report 8215325-1 (Version None)
Quarter: 2012Q1

REPORT INFORMATION
  Report Type: 
  Country: None (occurrence: None)
  Receive Date: 20120229
  Receipt Date: 20111212
  Transmission Date: 20120608
  Serious: Yes (Hospitalization)
  Sender: FDA-Public Use
  Company Number: PHEH2011US07874

PATIENT
  Age: 46 Year
  Sex: Female
  Weight: 107 kg

DRUGS (1)
  1. NEORAL [Suspect]
     Dosage: 25 MG, BID3SDO, ORAL
     Route: 048

REACTIONS (2)
  - KIDNEY INFECTION [None]
  - URINARY TRACT INFECTION [None]
